FAERS Safety Report 18467791 (Version 1)
Quarter: 2020Q4

REPORT INFORMATION
  Report Type: Spontaneous
  Country: US (occurrence: US)
  Receive Date: 20201104
  Receipt Date: 20201104
  Transmission Date: 20210114
  Serious: Yes (Death)
  Sender: FDA-Public Use
  Company Number: None

PATIENT
  Sex: Male

DRUGS (9)
  1. PHENYTOIN. [Concomitant]
     Active Substance: PHENYTOIN
  2. A-HYDROCORT [Concomitant]
     Active Substance: HYDROCORTISONE SODIUM SUCCINATE
  3. LEVETIRACETAM. [Concomitant]
     Active Substance: LEVETIRACETAM
  4. ALBUTEROL. [Concomitant]
     Active Substance: ALBUTEROL
  5. LEVOTHYROXINE. [Concomitant]
     Active Substance: LEVOTHYROXINE
  6. VIGABATRIN. [Suspect]
     Active Substance: VIGABATRIN
     Route: 048
  7. ESOMEPRAZOLE. [Concomitant]
     Active Substance: ESOMEPRAZOLE MAGNESIUM
  8. SODIUM CHLOR [Concomitant]
     Active Substance: SODIUM CHLORIDE
  9. IPRATROPIUM [Concomitant]
     Active Substance: IPRATROPIUM

REACTIONS (1)
  - Death [None]
